FAERS Safety Report 9421314 (Version 2)
Quarter: 2013Q3

REPORT INFORMATION
  Report Type: Spontaneous
  Country: US (occurrence: None)
  Receive Date: 20130718
  Receipt Date: 20130813
  Transmission Date: 20140515
  Serious: Yes (Other)
  Sender: FDA-Public Use
  Company Number: 2013036947

PATIENT
  Age: 35 Year
  Sex: Female
  Weight: 67 kg

DRUGS (1)
  1. ZEMAIRA (ALPHA-1 PROTEINASE INHIBITOR (HUMAN)) [Suspect]
     Dosage: STARTED 2 YEARS AGO INTRAVENOUS
     Dates: start: 20130623, end: 20130623

REACTIONS (4)
  - VIIth nerve paralysis [None]
  - Condition aggravated [None]
  - Platelet count decreased [None]
  - Headache [None]
